FAERS Safety Report 5955659-4 (Version None)
Quarter: 2008Q4

REPORT INFORMATION
  Report Type: 
  Country: None (occurrence: None)
  Receive Date: 20081117
  Receipt Date: 20081106
  Transmission Date: 20090506
  Serious: Yes (Other)
  Sender: FDA-Public Use
  Company Number: US-PFIZER INC-2008095024

PATIENT

DRUGS (5)
  1. CELEBREX [Suspect]
  2. POTASSIUM CHLORIDE [Suspect]
  3. VANCOMYCIN [Suspect]
  4. LASIX [Suspect]
  5. INSULIN [Suspect]

REACTIONS (4)
  - EATING DISORDER [None]
  - LETHARGY [None]
  - MENTAL IMPAIRMENT [None]
  - RENAL FAILURE ACUTE [None]
